FAERS Safety Report 12080027 (Version 1)
Quarter: 2016Q1

REPORT INFORMATION
  Report Type: Report from Study
  Country: IL (occurrence: IL)
  Receive Date: 20160216
  Receipt Date: 20160216
  Transmission Date: 20160526
  Serious: Yes (Hospitalization)
  Sender: FDA-Public Use
  Company Number: PHHY2015IL055610

PATIENT
  Age: 72 Year
  Sex: Male

DRUGS (2)
  1. SANDOSTATIN LAR DEPOT [Suspect]
     Active Substance: OCTREOTIDE ACETATE
     Indication: PANCREATIC NEUROENDOCRINE TUMOUR
     Dosage: 30 MG, EVERY 28 DAYS
     Route: 030
     Dates: start: 201410
  2. SANDOSTATIN LAR DEPOT [Suspect]
     Active Substance: OCTREOTIDE ACETATE
     Indication: CARCINOID TUMOUR

REACTIONS (13)
  - Rhinorrhoea [Not Recovered/Not Resolved]
  - Nausea [Not Recovered/Not Resolved]
  - Asthenia [Recovering/Resolving]
  - Decreased appetite [Not Recovered/Not Resolved]
  - Fall [Unknown]
  - Dizziness [Not Recovered/Not Resolved]
  - Cerebral atrophy [Unknown]
  - Pyrexia [Recovered/Resolved]
  - Nasopharyngitis [Not Recovered/Not Resolved]
  - Gait disturbance [Unknown]
  - Cough [Not Recovered/Not Resolved]
  - Haemoglobin decreased [Unknown]
  - Confusional state [Recovering/Resolving]

NARRATIVE: CASE EVENT DATE: 2014
